FAERS Safety Report 7153738-X (Version None)
Quarter: 2010Q4

REPORT INFORMATION
  Report Type: 
  Country: None (occurrence: None)
  Receive Date: 20101213
  Receipt Date: 20101202
  Transmission Date: 20110411
  Serious: Yes (Hospitalization)
  Sender: FDA-Public Use
  Company Number: IT-ASTRAZENECA-2010SE57582

PATIENT
  Age: 27411 Day
  Sex: Female

DRUGS (7)
  1. MERREM [Suspect]
     Route: 042
     Dates: start: 20101119, end: 20101123
  2. GENTAMICIN [Concomitant]
     Route: 042
  3. PREDNISONE [Concomitant]
     Route: 048
  4. AZATHIOPRINE [Concomitant]
     Route: 048
  5. PANTOPRAZOLE [Concomitant]
     Route: 048
  6. AMIODARONE [Concomitant]
  7. ACETYLSALICYLIC ACID [Concomitant]
     Route: 048

REACTIONS (1)
  - HYPERTRANSAMINASAEMIA [None]
